FAERS Safety Report 5444279-6 (Version None)
Quarter: 2007Q3

REPORT INFORMATION
  Report Type: 
  Country: None (occurrence: None)
  Receive Date: 20070904
  Receipt Date: 20070904
  Transmission Date: 20080115
  Serious: Yes (Life-Threatening, Hospitalization, Disabling, Other)
  Sender: FDA-Public Use
  Company Number: None

PATIENT
  Age: 61 Year
  Sex: Male
  Weight: 97.5234 kg

DRUGS (1)
  1. NITROQUICK [Suspect]
     Indication: CHEST PAIN
     Dosage: 1 5 MINUTES SL
     Route: 060
     Dates: start: 20070820, end: 20070820

REACTIONS (1)
  - CARDIAC ARREST [None]
